FAERS Safety Report 22825384 (Version 3)
Quarter: 2024Q3

REPORT INFORMATION
  Report Type: Report from Study
  Country: US (occurrence: US)
  Receive Date: 20230816
  Receipt Date: 20240724
  Transmission Date: 20241017
  Serious: Yes (Hospitalization, Other)
  Sender: JAZZ
  Company Number: US-JAZZ PHARMACEUTICALS-2023-US-017265

PATIENT
  Sex: Male

DRUGS (4)
  1. EPIDIOLEX [Suspect]
     Active Substance: CANNABIDIOL
     Indication: Infantile spasms
     Dosage: 6 MILLILITER, BID
     Dates: start: 202211
  2. EPIDIOLEX [Suspect]
     Active Substance: CANNABIDIOL
     Dosage: 6 MILLILITER, BID (GTUBE)
     Dates: start: 202211
  3. EPIDIOLEX [Suspect]
     Active Substance: CANNABIDIOL
     Dosage: 6 MILLILITER, BID
     Route: 048
     Dates: start: 202211
  4. CAYSTON [Concomitant]
     Active Substance: AZTREONAM
     Indication: Product used for unknown indication
     Dosage: 3 TIMES A DAY FOR 28 DAYS ON AND 28 DAYS OFF

REACTIONS (4)
  - Parainfluenzae virus infection [Recovered/Resolved]
  - Pneumonia aspiration [Recovered/Resolved]
  - Hospitalisation [Unknown]
  - Off label use [Unknown]
